FAERS Safety Report 5518012-3 (Version None)
Quarter: 2007Q4

REPORT INFORMATION
  Report Type: 
  Country: None (occurrence: None)
  Receive Date: 20071115
  Receipt Date: 20071107
  Transmission Date: 20080405
  Serious: Yes (Other)
  Sender: FDA-Public Use
  Company Number: PHEH2007US14554

PATIENT
  Sex: Female

DRUGS (1)
  1. LOTREL [Suspect]
     Indication: HYPERTENSION
     Route: 048

REACTIONS (8)
  - BREAST CANCER STAGE I [None]
  - BRONCHITIS [None]
  - COUGH [None]
  - HOT FLUSH [None]
  - IMPETIGO [None]
  - PYREXIA [None]
  - SINUSITIS [None]
  - WHITE BLOOD CELL COUNT DECREASED [None]
